FAERS Safety Report 7557263-3 (Version None)
Quarter: 2011Q2

REPORT INFORMATION
  Report Type: 
  Country: None (occurrence: None)
  Receive Date: 20110620
  Receipt Date: 20040422
  Transmission Date: 20111010
  Serious: Yes (Life-Threatening)
  Sender: FDA-Public Use
  Company Number: PHBS1995AU00910

PATIENT
  Sex: Male
  Weight: 67 kg

DRUGS (5)
  1. CLOZAPINE [Suspect]
     Dosage: 12 - 750 MG / DAY
     Dates: start: 19950111
  2. VALPROATE SODIUM [Suspect]
     Dosage: 20 G, ONCE/SINGLE
     Dates: start: 20040420
  3. CLOZAPINE [Suspect]
     Dosage: 200 MG, QD
     Route: 048
     Dates: start: 19940323, end: 19940526
  4. CLOZAPINE [Suspect]
     Dosage: 7.7 G, ONCE/SINGLE
     Dates: start: 20040420
  5. RISPERIDONE [Suspect]
     Dosage: 14 MG, ONCE/SINGLE

REACTIONS (6)
  - MULTIPLE DRUG OVERDOSE [None]
  - DELIRIUM [None]
  - SUICIDE ATTEMPT [None]
  - COMA [None]
  - HAEMATOMA [None]
  - INCOHERENT [None]
